FAERS Safety Report 10562374 (Version 2)
Quarter: 2014Q4

REPORT INFORMATION
  Report Type: Spontaneous
  Country: US (occurrence: US)
  Receive Date: 20141104
  Receipt Date: 20141229
  Transmission Date: 20150529
  Serious: Yes (Hospitalization)
  Sender: FDA-Public Use
  Company Number: US-UCBSA-2014016960

PATIENT
  Age: 37 Year
  Sex: Female
  Weight: 81.6 kg

DRUGS (3)
  1. KEPPRA XR [Suspect]
     Active Substance: LEVETIRACETAM
     Indication: SEIZURE
     Dosage: 500 MG
  2. DEPAKOTE [Concomitant]
     Active Substance: DIVALPROEX SODIUM
     Indication: EPILEPSY
     Dosage: 500 MG, 2X/DAY (BID) 2 PILLS IN AM AND 2 PILLS IN PM
     Route: 048
  3. VIMPAT [Suspect]
     Active Substance: LACOSAMIDE
     Indication: PRODUCT USED FOR UNKNOWN INDICATION
     Dosage: 100 MG, ONCE DAILY (QD)
     Dates: start: 201408

REACTIONS (5)
  - Full blood count decreased [Recovered/Resolved]
  - Haemoglobin decreased [Unknown]
  - Seizure [Unknown]
  - Partial seizures [Unknown]
  - Inappropriate schedule of drug administration [Unknown]

NARRATIVE: CASE EVENT DATE: 201408
